FAERS Safety Report 8357611-0 (Version None)
Quarter: 2012Q2

REPORT INFORMATION
  Report Type: 
  Country: None (occurrence: None)
  Receive Date: 20120511
  Receipt Date: 20120426
  Transmission Date: 20120825
  Serious: Yes (Hospitalization)
  Sender: FDA-Public Use
  Company Number: IBUP20120002

PATIENT
  Age: 77 Year
  Sex: Female

DRUGS (1)
  1. IBUPROFEN [Suspect]
     Indication: HEADACHE

REACTIONS (10)
  - GASTROINTESTINAL EROSION [None]
  - INTESTINAL ISCHAEMIA [None]
  - GASTROINTESTINAL NECROSIS [None]
  - LARGE INTESTINAL ULCER [None]
  - DIVERTICULUM INTESTINAL [None]
  - GASTROINTESTINAL SOUNDS ABNORMAL [None]
  - HAEMOGLOBIN DECREASED [None]
  - ARTERIOSCLEROSIS [None]
  - HAEMATOCHEZIA [None]
  - PALLOR [None]
